FAERS Safety Report 7647079-1 (Version None)
Quarter: 2011Q3

REPORT INFORMATION
  Report Type: 
  Country: None (occurrence: None)
  Receive Date: 20110801
  Receipt Date: 20110722
  Transmission Date: 20111222
  Serious: Yes (Hospitalization)
  Sender: FDA-Public Use
  Company Number: SE-SANOFI-AVENTIS-2011SA046868

PATIENT
  Age: 72 Year
  Sex: Female

DRUGS (7)
  1. TRAMADOL HCL [Concomitant]
  2. BEHEPAN [Concomitant]
  3. MULTAQ [Suspect]
     Route: 048
     Dates: start: 20101101, end: 20110501
  4. ATENOLOL [Concomitant]
  5. ALVEDON [Concomitant]
  6. HALCION [Concomitant]
  7. WARFARIN SODIUM [Concomitant]

REACTIONS (2)
  - FATIGUE [None]
  - ORTHOSTATIC HYPOTENSION [None]
